FAERS Safety Report 11643488 (Version 1)
Quarter: 2015Q4

REPORT INFORMATION
  Report Type: Spontaneous
  Country: US (occurrence: None)
  Receive Date: 20151019
  Receipt Date: 20151019
  Transmission Date: 20160304
  Serious: No
  Sender: FDA-Public Use
  Company Number: None

PATIENT
  Age: 27 Year
  Sex: Male
  Weight: 113.4 kg

DRUGS (4)
  1. COPENTIN [Concomitant]
  2. INVEGA SUSTENNA [Suspect]
     Active Substance: PALIPERIDONE PALMITATE
     Indication: SCHIZOPHRENIA
     Route: 030
     Dates: start: 20140713, end: 20151018
  3. ASPIRIN. [Concomitant]
     Active Substance: ASPIRIN
  4. MULTI VITAMIN [Concomitant]
     Active Substance: VITAMINS

REACTIONS (8)
  - Hyperprolactinaemia [None]
  - Musculoskeletal stiffness [None]
  - Amnesia [None]
  - Dizziness [None]
  - Tardive dyskinesia [None]
  - Erectile dysfunction [None]
  - Myalgia [None]
  - Eye movement disorder [None]

NARRATIVE: CASE EVENT DATE: 20151018
